FAERS Safety Report 7125636-9 (Version None)
Quarter: 2010Q4

REPORT INFORMATION
  Report Type: 
  Country: None (occurrence: None)
  Receive Date: 20101129
  Receipt Date: 20101117
  Transmission Date: 20110411
  Serious: Yes (Other)
  Sender: FDA-Public Use
  Company Number: GB-ASTRAZENECA-2010SE54912

PATIENT
  Age: 45 Year
  Sex: Male
  Weight: 80 kg

DRUGS (1)
  1. LIDOCAINE HYDROCHLORIDE [Suspect]
     Indication: BURSITIS
     Dosage: 2 ML OF 2 PERCENT STRENGTH (40 MG)
     Route: 014
     Dates: start: 20101029, end: 20101029

REACTIONS (5)
  - AFFECT LABILITY [None]
  - ALTERED STATE OF CONSCIOUSNESS [None]
  - FATIGUE [None]
  - HYPERSENSITIVITY [None]
  - PARAESTHESIA ORAL [None]
